FAERS Safety Report 20960509 (Version 2)
Quarter: 2022Q2

REPORT INFORMATION
  Report Type: Spontaneous
  Country: US (occurrence: US)
  Receive Date: 20220615
  Receipt Date: 20220620
  Transmission Date: 20220721
  Serious: No
  Sender: FDA-Public Use
  Company Number: US-AMGEN-USASP2022100163

PATIENT
  Age: 77 Year
  Sex: Male

DRUGS (7)
  1. OTEZLA [Suspect]
     Active Substance: APREMILAST
     Indication: Psoriatic arthropathy
     Dosage: 20 MILLIGRAM, BID
     Route: 065
     Dates: start: 20220606, end: 202206
  2. OTEZLA [Suspect]
     Active Substance: APREMILAST
     Indication: Psoriasis
  3. TREMFYA [Concomitant]
     Active Substance: GUSELKUMAB
     Indication: Product used for unknown indication
     Dosage: UNK
  4. TREMFYA [Concomitant]
     Active Substance: GUSELKUMAB
     Route: 065
  5. TREMFYA [Concomitant]
     Active Substance: GUSELKUMAB
     Route: 065
  6. TREMFYA [Concomitant]
     Active Substance: GUSELKUMAB
     Route: 065
  7. TREMFYA [Concomitant]
     Active Substance: GUSELKUMAB
     Route: 065

REACTIONS (1)
  - Psoriasis [Unknown]

NARRATIVE: CASE EVENT DATE: 20220601
